FAERS Safety Report 19986258 (Version 1)
Quarter: 2021Q4

REPORT INFORMATION
  Report Type: Spontaneous
  Country: DE (occurrence: DE)
  Receive Date: 20211022
  Receipt Date: 20211022
  Transmission Date: 20220304
  Serious: Yes (Other)
  Sender: FDA-Public Use
  Company Number: DE-TAKEDA-2021TUS065044

PATIENT
  Age: 11 Year

DRUGS (3)
  1. MESALAMINE [Suspect]
     Active Substance: MESALAMINE
     Indication: Crohn^s disease
     Dosage: 1500 MILLIGRAM, QD
     Route: 048
  2. MESALAMINE [Suspect]
     Active Substance: MESALAMINE
     Dosage: 1 GRAM, QD
     Route: 054
  3. SULFASALAZINE [Suspect]
     Active Substance: SULFASALAZINE
     Indication: Crohn^s disease
     Dosage: 1500 MILLIGRAM, QD
     Route: 048

REACTIONS (4)
  - Tubulointerstitial nephritis [Recovering/Resolving]
  - Acute kidney injury [Recovering/Resolving]
  - Hypersensitivity [Recovering/Resolving]
  - Drug interaction [Recovering/Resolving]
